FAERS Safety Report 8510049 (Version 3)
Quarter: 2019Q3

REPORT INFORMATION
  Report Type: Spontaneous
  Country: BR (occurrence: BR)
  Receive Date: 20120413
  Receipt Date: 20190919
  Transmission Date: 20191005
  Serious: Yes (Other)
  Sender: FDA-Public Use
  Company Number: BR-AMGEN-BRASP2012022174

PATIENT
  Age: 47 Year
  Sex: Female
  Weight: 64.5 kg

DRUGS (14)
  1. ENBREL [Suspect]
     Active Substance: ETANERCEPT
     Indication: RHEUMATOID ARTHRITIS
     Dosage: 50 MG, WEEKLY
     Route: 058
     Dates: start: 20111212, end: 201206
  2. ENBREL [Suspect]
     Active Substance: ETANERCEPT
     Dosage: 50 MG, WEEKLY
     Route: 058
     Dates: start: 201206, end: 2017
  3. OMEPRAZOLE. [Concomitant]
     Active Substance: OMEPRAZOLE
     Dosage: 20 MG, 1X/DAY
  4. FOLIC ACID. [Concomitant]
     Active Substance: FOLIC ACID
     Dosage: STRENGTH 5MG, TWICE WEEKLY
  5. ARAVA [Concomitant]
     Active Substance: LEFLUNOMIDE
     Dosage: UNSPECIFIED DOSE, IN ALTERNATE DAYS
  6. REUQUINOL [Concomitant]
     Active Substance: HYDROXYCHLOROQUINE SULFATE
     Dosage: UNK, 1X/DAY
  7. ARAVA [Concomitant]
     Active Substance: LEFLUNOMIDE
     Dosage: UNK, ALTERNATE DAY
  8. DEFLAZACORT [Concomitant]
     Active Substance: DEFLAZACORT
     Dosage: A HALF OF TABLET OF 6MG (3MG) EVERY DAY
  9. DEFLAZACORT [Concomitant]
     Active Substance: DEFLAZACORT
     Dosage: A HALF OF TABLET OF 6MG (3MG) EVERY DAY
  10. FOLIC ACID. [Concomitant]
     Active Substance: FOLIC ACID
     Dosage: UNK, 2X/WEEK
  11. METHOTREXATE. [Concomitant]
     Active Substance: METHOTREXATE
     Dosage: UNK, CYCLIC (EVERY 8 DAYS)
  12. REUQUINOL [Concomitant]
     Active Substance: HYDROXYCHLOROQUINE SULFATE
     Dosage: STRENGTH 400MG, ONCE DAILY
  13. METHOTREXATE. [Concomitant]
     Active Substance: METHOTREXATE
     Dosage: STRENGTH 15MG, EVERY 8 DAYS
  14. OMEPRAZOLE. [Concomitant]
     Active Substance: OMEPRAZOLE
     Dosage: UNK UNK, 1X/DAY

REACTIONS (6)
  - Application site erythema [Unknown]
  - Oedema peripheral [Not Recovered/Not Resolved]
  - White blood cell count decreased [Unknown]
  - Rheumatoid arthritis [Not Recovered/Not Resolved]
  - Decreased immune responsiveness [Unknown]
  - Inflammation [Not Recovered/Not Resolved]

NARRATIVE: CASE EVENT DATE: 20120402
